FAERS Safety Report 20936482 (Version 1)
Quarter: 2022Q2

REPORT INFORMATION
  Report Type: Spontaneous
  Country: US (occurrence: None)
  Receive Date: 20220609
  Receipt Date: 20220609
  Transmission Date: 20220721
  Serious: No
  Sender: FDA-Public Use
  Company Number: 2022A204590

PATIENT
  Sex: Male
  Weight: 90.7 kg

DRUGS (1)
  1. BYDUREON BCISE [Suspect]
     Active Substance: EXENATIDE
     Indication: Diabetes mellitus
     Route: 058
     Dates: start: 202112

REACTIONS (6)
  - Blood glucose increased [Unknown]
  - Glycosylated haemoglobin increased [Unknown]
  - Blood glucose fluctuation [Unknown]
  - Malaise [Unknown]
  - Glycosylated haemoglobin abnormal [Unknown]
  - Device leakage [Unknown]
